FAERS Safety Report 9140524 (Version 1)
Quarter: 2013Q1

REPORT INFORMATION
  Report Type: Spontaneous
  Country: PT (occurrence: PT)
  Receive Date: 20130305
  Receipt Date: 20130305
  Transmission Date: 20140127
  Serious: Yes (Other)
  Sender: FDA-Public Use
  Company Number: PHHY2013PT018339

PATIENT
  Sex: Male
  Weight: 65 kg

DRUGS (6)
  1. STALEVO [Suspect]
     Indication: PARKINSON^S DISEASE
     Dosage: 1 DF, QD
     Route: 048
     Dates: start: 2011
  2. AZILECT [Suspect]
     Indication: PARKINSON^S DISEASE
     Dosage: 1 MG, TID
     Route: 048
     Dates: start: 2011
  3. SINEMET [Concomitant]
     Dosage: 1 DF, QID
     Route: 048
     Dates: start: 2000, end: 2011
  4. COMTAN [Concomitant]
     Dosage: 200 MG, TID
     Route: 048
     Dates: start: 2000, end: 2011
  5. LEVODOPA-CARBIDOPA [Concomitant]
     Dosage: 4 DF, UNK
     Route: 048
  6. ENTACAPONE [Concomitant]
     Dosage: 3 DF, DAILY
     Route: 048

REACTIONS (2)
  - Monoclonal gammopathy [Unknown]
  - Light chain disease [Unknown]
